FAERS Safety Report 25615976 (Version 2)
Quarter: 2025Q3

REPORT INFORMATION
  Report Type: Spontaneous
  Country: US (occurrence: US)
  Receive Date: 20250729
  Receipt Date: 20250801
  Transmission Date: 20251021
  Serious: No
  Sender: LUPIN
  Company Number: US-LUPIN PHARMACEUTICALS INC.-2025-06525

PATIENT
  Sex: Male
  Weight: 15.42 kg

DRUGS (1)
  1. DOXYCYCLINE [Suspect]
     Active Substance: DOXYCYCLINE
     Indication: Lyme disease
     Dates: start: 20250617, end: 20250716

REACTIONS (2)
  - Product storage error [Unknown]
  - No adverse event [Unknown]
